FAERS Safety Report 10693656 (Version 1)
Quarter: 2015Q1

REPORT INFORMATION
  Report Type: Spontaneous
  Country: ES (occurrence: US)
  Receive Date: 20150106
  Receipt Date: 20150106
  Transmission Date: 20150721
  Serious: No
  Sender: FDA-Public Use
  Company Number: ES-ASTRAZENECA-2014SE90847

PATIENT
  Sex: Female
  Weight: 49.9 kg

DRUGS (3)
  1. ZOLADEX [Suspect]
     Active Substance: GOSERELIN ACETATE
     Indication: ENDOMETRIAL DISORDER
     Route: 058
     Dates: start: 2012
  2. ZOLADEX [Suspect]
     Active Substance: GOSERELIN ACETATE
     Indication: BREAST CANCER
     Route: 058
     Dates: start: 2012
  3. TAMOXIFEN [Concomitant]
     Active Substance: TAMOXIFEN
     Indication: BREAST CANCER
     Route: 048
     Dates: start: 2010

REACTIONS (3)
  - Endometrial disorder [Unknown]
  - Circumstance or information capable of leading to medication error [Unknown]
  - Drug administration error [Unknown]

NARRATIVE: CASE EVENT DATE: 20141121
